FAERS Safety Report 5615293-2 (Version None)
Quarter: 2008Q1

REPORT INFORMATION
  Report Type: 
  Country: None (occurrence: None)
  Receive Date: 20080206
  Receipt Date: 20080201
  Transmission Date: 20080703
  Serious: Yes (Death)
  Sender: FDA-Public Use
  Company Number: PHBS2008CN01610

PATIENT
  Sex: Male

DRUGS (1)
  1. SANDOSTATIN [Suspect]
     Indication: PANCREATITIS
     Dates: start: 20060101

REACTIONS (2)
  - BLOOD PRESSURE INCREASED [None]
  - LEFT VENTRICULAR FAILURE [None]
